FAERS Safety Report 7692526-2 (Version None)
Quarter: 2011Q3

REPORT INFORMATION
  Report Type: 
  Country: None (occurrence: None)
  Receive Date: 20110819
  Receipt Date: 20110812
  Transmission Date: 20111222
  Serious: Yes (Hospitalization)
  Sender: FDA-Public Use
  Company Number: US-MERCK-1106USA03534

PATIENT
  Age: 45 Year
  Sex: Male
  Weight: 74 kg

DRUGS (4)
  1. IVEMEND [Suspect]
     Indication: NAUSEA
     Route: 042
     Dates: start: 20110622, end: 20110622
  2. VITAMIN D (UNSPECIFIED) [Concomitant]
     Indication: VITAMIN D DEFICIENCY
     Route: 065
  3. NICOTINE [Concomitant]
     Indication: NICOTINE DEPENDENCE
     Route: 065
  4. NEXIUM [Concomitant]
     Indication: GASTROOESOPHAGEAL REFLUX DISEASE
     Route: 065

REACTIONS (11)
  - PRESYNCOPE [None]
  - VOMITING [None]
  - PHOTOPSIA [None]
  - DYSPNOEA [None]
  - RASH PUSTULAR [None]
  - NAUSEA [None]
  - DIZZINESS [None]
  - CHEST DISCOMFORT [None]
  - HYPERSENSITIVITY [None]
  - ALTERED STATE OF CONSCIOUSNESS [None]
  - FLUSHING [None]
